FAERS Safety Report 4900897-2 (Version None)
Quarter: 2006Q1

REPORT INFORMATION
  Report Type: 
  Country: None (occurrence: None)
  Receive Date: 20060113
  Receipt Date: 20050919
  Transmission Date: 20060701
  Serious: No
  Sender: FDA-Public Use
  Company Number: 2005SP002702

PATIENT
  Age: 76 Year
  Sex: Female
  Weight: 64.8644 kg

DRUGS (4)
  1. LUNESTA [Suspect]
     Indication: FIBROMYALGIA
     Dosage: 2 MG;HS;ORAL
     Route: 048
     Dates: start: 20050905, end: 20050905
  2. LUNESTA [Suspect]
     Indication: INSOMNIA
     Dosage: 2 MG;HS;ORAL
     Route: 048
     Dates: start: 20050905, end: 20050905
  3. LUNESTA [Suspect]
     Indication: FIBROMYALGIA
     Dosage: 2 MG;HS;ORAL
     Route: 048
     Dates: start: 20050907, end: 20050911
  4. LUNESTA [Suspect]
     Indication: INSOMNIA
     Dosage: 2 MG;HS;ORAL
     Route: 048
     Dates: start: 20050907, end: 20050911

REACTIONS (4)
  - EYE PAIN [None]
  - HEADACHE [None]
  - SOMNOLENCE [None]
  - VISUAL DISTURBANCE [None]
